FAERS Safety Report 9105770 (Version 2)
Quarter: 2013Q1

REPORT INFORMATION
  Report Type: Spontaneous
  Country: US (occurrence: US)
  Receive Date: 20130220
  Receipt Date: 20130304
  Transmission Date: 20140127
  Serious: Yes (Other)
  Sender: FDA-Public Use
  Company Number: PHEH2013US001563

PATIENT
  Sex: Male
  Weight: 117.91 kg

DRUGS (5)
  1. GILENYA [Suspect]
     Indication: MULTIPLE SCLEROSIS
     Dosage: 0.5 MG, QD
     Route: 048
  2. WELLBUTRIN [Concomitant]
     Dosage: 100 MG, UNK
  3. GABAPENTIN [Concomitant]
     Dosage: 100 MG, UNK
  4. MULTIPLE VITAMINS [Concomitant]
  5. VITAMIN D NOS [Concomitant]
     Dosage: 1000 U, UNK

REACTIONS (3)
  - Prostatitis [Unknown]
  - Diverticulitis [Unknown]
  - White blood cell count decreased [Recovered/Resolved]
